FAERS Safety Report 15369549 (Version 2)
Quarter: 2018Q4

REPORT INFORMATION
  Report Type: Spontaneous
  Country: US (occurrence: US)
  Receive Date: 20180911
  Receipt Date: 20181004
  Transmission Date: 20190204
  Serious: No
  Sender: FDA-Public Use
  Company Number: US-PFIZER INC-2018362113

PATIENT
  Sex: Female

DRUGS (5)
  1. SODIUM SULFACETAMIDE [Suspect]
     Active Substance: SULFACETAMIDE SODIUM
     Dosage: UNK
  2. ZESTRIL [Suspect]
     Active Substance: LISINOPRIL
     Dosage: UNK
  3. SULFACETAMIDE. [Suspect]
     Active Substance: SULFACETAMIDE
     Dosage: UNK
  4. LISINOPRIL. [Suspect]
     Active Substance: LISINOPRIL
     Dosage: UNK
  5. HEPARIN SODIUM. [Suspect]
     Active Substance: HEPARIN SODIUM
     Dosage: UNK

REACTIONS (1)
  - Drug hypersensitivity [Unknown]
